FAERS Safety Report 6344795-9 (Version None)
Quarter: 2009Q3

REPORT INFORMATION
  Report Type: 
  Country: None (occurrence: None)
  Receive Date: 20090904
  Receipt Date: 20090825
  Transmission Date: 20100115
  Serious: Yes (Hospitalization)
  Sender: FDA-Public Use
  Company Number: 238513J08USA

PATIENT
  Age: 66 Year
  Sex: Male

DRUGS (3)
  1. REBIF [Suspect]
     Indication: MULTIPLE SCLEROSIS
     Dosage: 44 MCG, 3 IN 1 WEEKS, SUBCUTANEOUS
     Route: 058
     Dates: start: 20050405
  2. LITHIUM CARBONATE [Concomitant]
  3. UNSPECIFIED MEDICATIONS (ALL OTHER THERAPEUTIC PRODUCTS) [Concomitant]

REACTIONS (13)
  - ABASIA [None]
  - ARTHRALGIA [None]
  - ARTHROPATHY [None]
  - DRY THROAT [None]
  - DYSPNOEA [None]
  - HERNIA [None]
  - HERNIA REPAIR [None]
  - INSOMNIA [None]
  - JOINT EFFUSION [None]
  - OSTEOARTHRITIS [None]
  - POLLAKIURIA [None]
  - SLEEP APNOEA SYNDROME [None]
  - THIRST [None]
